FAERS Safety Report 7972479-X (Version None)
Quarter: 2011Q4

REPORT INFORMATION
  Report Type: 
  Country: None (occurrence: None)
  Receive Date: 20111213
  Receipt Date: 20111202
  Transmission Date: 20120403
  Serious: Yes (Hospitalization, Other)
  Sender: FDA-Public Use
  Company Number: GR-BRISTOL-MYERS SQUIBB COMPANY-16274391

PATIENT
  Age: 77 Year
  Sex: Female

DRUGS (5)
  1. NORVASC [Concomitant]
     Indication: BLOOD PRESSURE INCREASED
  2. PRILOSEC [Concomitant]
  3. GLUCOPHAGE [Suspect]
     Indication: TYPE 2 DIABETES MELLITUS
     Dosage: 500MG:HALF TABLET IN MORNING
     Route: 048
  4. GLYBURIDE [Suspect]
     Indication: TYPE 2 DIABETES MELLITUS
     Dosage: 1DF:1TAB
  5. ATENOLOL AND CHLORTHALIDONE [Concomitant]
     Dosage: 1DF:HALF TABLET TENORIC 50

REACTIONS (3)
  - HAEMATOCHEZIA [None]
  - GASTRIC HAEMORRHAGE [None]
  - HAEMATOCRIT ABNORMAL [None]
